FAERS Safety Report 24307184 (Version 1)
Quarter: 2024Q3

REPORT INFORMATION
  Report Type: Spontaneous
  Country: FR (occurrence: None)
  Receive Date: 20240911
  Receipt Date: 20240911
  Transmission Date: 20241017
  Serious: Yes (Hospitalization)
  Sender: ASTRAZENECA
  Company Number: 2024A196840

PATIENT
  Age: 44 Year
  Sex: Female

DRUGS (1)
  1. QUETIAPINE [Suspect]
     Active Substance: QUETIAPINE
     Indication: Schizoaffective disorder
     Route: 048
     Dates: end: 20240806

REACTIONS (5)
  - Neuroleptic malignant syndrome [Recovered/Resolved]
  - Hypokalaemia [Unknown]
  - Rhabdomyolysis [Unknown]
  - Hepatic cytolysis [Unknown]
  - Cystitis escherichia [Unknown]

NARRATIVE: CASE EVENT DATE: 20240806
